FAERS Safety Report 9831856 (Version 1)
Quarter: 2014Q1

REPORT INFORMATION
  Report Type: Spontaneous
  Country: CA (occurrence: CA)
  Receive Date: 20140121
  Receipt Date: 20140121
  Transmission Date: 20141002
  Serious: Yes (Hospitalization)
  Sender: FDA-Public Use
  Company Number: CA-SA-2014SA006602

PATIENT
  Sex: Male

DRUGS (1)
  1. ELIGARD [Suspect]
     Indication: PROSTATE CANCER
     Dosage: FREQUENCY: PER 6 MONTHS
     Route: 058
     Dates: start: 20130302

REACTIONS (1)
  - General physical health deterioration [Not Recovered/Not Resolved]
